FAERS Safety Report 9843718 (Version 1)
Quarter: 2014Q1

REPORT INFORMATION
  Report Type: Spontaneous
  Country: US (occurrence: US)
  Receive Date: 20140126
  Receipt Date: 20140126
  Transmission Date: 20141002
  Serious: No
  Sender: FDA-Public Use
  Company Number: US-009507513-1401USA010972

PATIENT
  Age: 36 Year
  Sex: Female

DRUGS (3)
  1. SAPHRIS [Suspect]
     Indication: BIPOLAR DISORDER
     Dosage: 5 MG, BID
     Route: 060
     Dates: start: 201204
  2. SAPHRIS [Suspect]
     Dosage: 10 MG, HS
     Route: 060
  3. TRAZODONE HYDROCHLORIDE [Concomitant]

REACTIONS (2)
  - Libido decreased [Not Recovered/Not Resolved]
  - Galactorrhoea [Not Recovered/Not Resolved]
